FAERS Safety Report 9702890 (Version 1)
Quarter: 2013Q4

REPORT INFORMATION
  Report Type: Spontaneous
  Country: US (occurrence: None)
  Receive Date: 20131120
  Receipt Date: 20131120
  Transmission Date: 20140711
  Serious: Yes (Other)
  Sender: FDA-Public Use
  Company Number: 99946

PATIENT
  Age: 69 Year
  Sex: Male
  Weight: 70.31 kg

DRUGS (1)
  1. WELLPATCH CAPSAICIN PAIN RELIEF [Suspect]
     Indication: PAIN
     Route: 061
     Dates: start: 20131105

REACTIONS (3)
  - Application site pain [None]
  - Application site vesicles [None]
  - Application site irritation [None]
